FAERS Safety Report 18641604 (Version 2)
Quarter: 2020Q4

REPORT INFORMATION
  Report Type: Spontaneous
  Country: US (occurrence: US)
  Receive Date: 20201221
  Receipt Date: 20201221
  Transmission Date: 20210114
  Serious: No
  Sender: FDA-Public Use
  Company Number: US-ALLERGAN-2035041US

PATIENT
  Age: 80 Year
  Sex: Female

DRUGS (4)
  1. DURYSTA [Suspect]
     Active Substance: BIMATOPROST
     Indication: GLAUCOMA
     Dosage: 10 ?G, SINGLE
     Route: 031
     Dates: start: 20200911, end: 20201013
  2. DURYSTA [Suspect]
     Active Substance: BIMATOPROST
     Indication: GLAUCOMA
     Dosage: 10 ?G, SINGLE
     Route: 031
     Dates: start: 20200821, end: 20200821
  3. TIMOLOL. [Concomitant]
     Active Substance: TIMOLOL
  4. ALPHAGAN P [Concomitant]
     Active Substance: BRIMONIDINE TARTRATE

REACTIONS (2)
  - Ocular hypertension [Recovering/Resolving]
  - Device issue [Unknown]

NARRATIVE: CASE EVENT DATE: 20200904
